FAERS Safety Report 6666470-3 (Version None)
Quarter: 2010Q2

REPORT INFORMATION
  Report Type: 
  Country: None (occurrence: None)
  Receive Date: 20100402
  Receipt Date: 20100330
  Transmission Date: 20101027
  Serious: Yes (Death)
  Sender: FDA-Public Use
  Company Number: US-GILEAD-2010-0028214

PATIENT
  Sex: Female
  Weight: 108.96 kg

DRUGS (18)
  1. LETAIRIS [Suspect]
     Indication: PULMONARY ARTERIAL HYPERTENSION
     Route: 048
     Dates: start: 20090220
  2. LASIX [Concomitant]
  3. EDECRIN [Concomitant]
  4. CARDIZEM [Concomitant]
  5. CARTIA XT [Concomitant]
  6. NIFEDIAC [Concomitant]
  7. PRILOSEC [Concomitant]
  8. SYNTHROID [Concomitant]
  9. PREDNISONE TAB [Concomitant]
  10. FISH OIL [Concomitant]
  11. FOLIC ACID [Concomitant]
  12. FLAX SEED [Concomitant]
  13. IRON [Concomitant]
  14. LOVAZA [Concomitant]
  15. POTASSIUM CHLORIDE [Concomitant]
  16. VITAMIN C [Concomitant]
  17. VITAMIN D [Concomitant]
  18. MULTI-VITAMIN [Concomitant]

REACTIONS (1)
  - DEATH [None]
